FAERS Safety Report 6869654-4 (Version None)
Quarter: 2010Q3

REPORT INFORMATION
  Report Type: 
  Country: None (occurrence: None)
  Receive Date: 20100722
  Receipt Date: 20080812
  Transmission Date: 20110219
  Serious: Yes (Other)
  Sender: FDA-Public Use
  Company Number: US-PFIZER INC-2008068089

PATIENT
  Sex: Male

DRUGS (5)
  1. CHANTIX [Suspect]
     Indication: SMOKING CESSATION THERAPY
     Dates: start: 20080808
  2. LORAZEPAM [Concomitant]
  3. COMBIVENT [Concomitant]
     Indication: DYSPNOEA
  4. DUONEB [Concomitant]
     Indication: DYSPNOEA
     Route: 055
  5. NEXIUM [Concomitant]
     Indication: GASTROOESOPHAGEAL REFLUX DISEASE

REACTIONS (4)
  - ANXIETY [None]
  - HOT FLUSH [None]
  - HYPERCHLORHYDRIA [None]
  - PALPITATIONS [None]
